FAERS Safety Report 9159658 (Version 1)
Quarter: 2013Q1

REPORT INFORMATION
  Report Type: Spontaneous
  Country: US (occurrence: US)
  Receive Date: 20130313
  Receipt Date: 20130313
  Transmission Date: 20140127
  Serious: No
  Sender: FDA-Public Use
  Company Number: US-PFIZER INC-2013081612

PATIENT
  Sex: Male

DRUGS (6)
  1. SUTENT [Suspect]
     Dosage: UNK
  2. ASPIRIN [Concomitant]
     Dosage: UNK
  3. SIMVASTATIN [Concomitant]
     Dosage: UNK
  4. WARFARIN [Concomitant]
     Dosage: UNK
  5. VITAMIN B [Concomitant]
     Dosage: UNK
  6. COREG [Concomitant]
     Dosage: UNK

REACTIONS (1)
  - Oropharyngeal pain [Unknown]
